FAERS Safety Report 11455984 (Version 1)
Quarter: 2015Q3

REPORT INFORMATION
  Report Type: Spontaneous
  Country: US (occurrence: US)
  Receive Date: 20150903
  Receipt Date: 20150903
  Transmission Date: 20151125
  Serious: Yes (Hospitalization, Other)
  Sender: FDA-Public Use
  Company Number: US-TEVA-591324USA

PATIENT
  Age: 59 Year
  Sex: Male

DRUGS (24)
  1. VORICONAZOLE. [Interacting]
     Active Substance: VORICONAZOLE
     Dosage: 200 MILLIGRAM DAILY;
     Route: 048
     Dates: start: 20141231
  2. ASPIRIN EC [Concomitant]
     Active Substance: ASPIRIN
     Dosage: 81 MILLIGRAM DAILY; AT BEDTIME
     Route: 048
  3. PRAVASTATIN [Interacting]
     Active Substance: PRAVASTATIN\PRAVASTATIN SODIUM
     Dosage: 20 MILLIGRAM DAILY; 1/2 TABLET EVERY EVENING
     Route: 048
  4. MS CONTIN [Concomitant]
     Active Substance: MORPHINE SULFATE
     Dosage: 60 MILLIGRAM DAILY;
     Route: 048
  5. VITAMIN B12 [Concomitant]
     Active Substance: CYANOCOBALAMIN
     Dosage: 1000 MICROGRAM DAILY;
     Route: 048
  6. INSULIN REGULAR [Concomitant]
     Active Substance: INSULIN NOS
     Dosage: 15 IU (INTERNATIONAL UNIT) DAILY; BEFORE MEALS PER SLIDING SCALE
     Route: 058
  7. LEVOTHYROXINE. [Concomitant]
     Active Substance: LEVOTHYROXINE
     Dosage: 75 MICROGRAM DAILY; BEFORE BREAKFAST, AT LEAST 30 MINUTES BEFORE FOOD
     Route: 048
  8. LOSARTAN. [Concomitant]
     Active Substance: LOSARTAN
     Dosage: 100 MILLIGRAM DAILY;
     Route: 048
  9. MELOXICAM. [Concomitant]
     Active Substance: MELOXICAM
     Dosage: DAILY AS NEEDED
     Route: 048
  10. NITROGLYCERIN. [Concomitant]
     Active Substance: NITROGLYCERIN
     Dosage: EVERY 5 MINUTES AS NEEDED
     Route: 060
  11. OMEPRAZOLE. [Concomitant]
     Active Substance: OMEPRAZOLE
     Dosage: 40 MILLIGRAM DAILY;
     Route: 048
  12. ALBUTEROL. [Concomitant]
     Active Substance: ALBUTEROL
     Indication: WHEEZING
     Dosage: EVERY 4 HOURS AS NEEDED
  13. ALBUTEROL. [Concomitant]
     Active Substance: ALBUTEROL
     Indication: DYSPNOEA
  14. METFORMIN [Concomitant]
     Active Substance: METFORMIN HYDROCHLORIDE
     Dosage: 1000 MILLIGRAM DAILY; WITH MEALS
     Route: 048
  15. VORICONAZOLE. [Suspect]
     Active Substance: VORICONAZOLE
     Indication: BRONCHOPULMONARY ASPERGILLOSIS
     Dosage: 400 MILLIGRAM DAILY;
     Route: 048
     Dates: start: 201401, end: 201412
  16. LORAZEPAM. [Concomitant]
     Active Substance: LORAZEPAM
     Indication: ANXIETY
     Dosage: AT BEDTIME
     Route: 048
  17. FLUTICASONE [Concomitant]
     Active Substance: FLUTICASONE\FLUTICASONE PROPIONATE
     Indication: RHINITIS
     Dosage: 1 SPRAY TO EACH NOSTRIL 2 TIMES DAILY AS NEEDED
  18. SULFASALAZINE. [Concomitant]
     Active Substance: SULFASALAZINE
     Dosage: 1000 MILLIGRAM DAILY;
     Route: 048
  19. DOXYCYCLINE. [Concomitant]
     Active Substance: DOXYCYCLINE
     Dosage: 200 MILLIGRAM DAILY; WITH MEALS
     Route: 048
  20. ONDANSETRON [Concomitant]
     Active Substance: ONDANSETRON
     Indication: NAUSEA
     Dosage: EVERY 6 HOURS AS NEEDED
     Route: 048
  21. PROMETHAZINE [Concomitant]
     Active Substance: PROMETHAZINE\PROMETHAZINE HYDROCHLORIDE
     Indication: COUGH
     Dosage: EVERY 8 HOURS AS NEEDED
     Route: 048
  22. CETIRIZINE [Concomitant]
     Active Substance: CETIRIZINE HYDROCHLORIDE
     Indication: HYPERSENSITIVITY
     Dosage: DAILY AS NEEDED
     Route: 048
  23. MSIR [Concomitant]
     Active Substance: MORPHINE SULFATE
     Dosage: EVERY 6 HOURS AS NEEDED
     Route: 048
  24. PREDNISONE. [Concomitant]
     Active Substance: PREDNISONE
     Dosage: 15 MILLIGRAM DAILY;
     Route: 048

REACTIONS (18)
  - Rheumatoid arthritis [Unknown]
  - Bronchopulmonary aspergillosis [Not Recovered/Not Resolved]
  - Enterovirus infection [Unknown]
  - Ventricular tachycardia [Recovered/Resolved]
  - Pain [Unknown]
  - Headache [Unknown]
  - Heart rate decreased [Unknown]
  - Rhinovirus infection [Unknown]
  - Blood glucose increased [Unknown]
  - Depression [Unknown]
  - Toxicity to various agents [Recovered/Resolved]
  - Palpitations [Unknown]
  - Biliary tract dilation procedure [Unknown]
  - Drug interaction [Recovered/Resolved]
  - Pulmonary hypertension [Unknown]
  - Weight decreased [Unknown]
  - Hallucination, visual [Recovered/Resolved]
  - Upper respiratory tract infection [Unknown]

NARRATIVE: CASE EVENT DATE: 20140728
